APPROVED DRUG PRODUCT: TOFACITINIB CITRATE
Active Ingredient: TOFACITINIB CITRATE
Strength: EQ 22MG BASE
Dosage Form/Route: TABLET, EXTENDED RELEASE;ORAL
Application: A214264 | Product #002
Applicant: ZYDUS PHARMACEUTICALS USA INC
Approved: Aug 19, 2021 | RLD: No | RS: No | Type: DISCN